FAERS Safety Report 17023701 (Version 6)
Quarter: 2020Q1

REPORT INFORMATION
  Report Type: Spontaneous
  Country: US (occurrence: US)
  Receive Date: 20191113
  Receipt Date: 20200323
  Transmission Date: 20200409
  Serious: Yes (Hospitalization)
  Sender: FDA-Public Use
  Company Number: US-CELGENEUS-USA-20191103121

PATIENT
  Age: 76 Year
  Sex: Male
  Weight: 54.48 kg

DRUGS (22)
  1. AMLODIPINE [Concomitant]
     Active Substance: AMLODIPINE BESYLATE
     Indication: HYPERTENSION
     Dosage: 5 MILLIGRAM
     Route: 048
     Dates: start: 2010
  2. LEVOFLOXACIN. [Concomitant]
     Active Substance: LEVOFLOXACIN
     Indication: INFECTION PROPHYLAXIS
     Dosage: 500 MILLIGRAM
     Route: 048
     Dates: start: 20190815
  3. VITEYES [Concomitant]
     Indication: GLAUCOMA
  4. SODIUM CHLORIDE. [Concomitant]
     Active Substance: SODIUM CHLORIDE
     Dosage: 1000 MILLILITER
     Route: 041
     Dates: start: 20191014, end: 20191014
  5. VITEYES [Concomitant]
     Indication: CATARACT
     Route: 047
     Dates: start: 2017
  6. COD LIVER OIL [Concomitant]
     Active Substance: COD LIVER OIL
     Indication: SUPPLEMENTATION THERAPY
     Dosage: 1000 MILLIGRAM
     Route: 048
     Dates: start: 2014
  7. LEUCOCYTES [Concomitant]
     Indication: DIARRHOEA
     Route: 048
     Dates: start: 20190831
  8. SODIUM CHLORIDE. [Concomitant]
     Active Substance: SODIUM CHLORIDE
     Dosage: 1000 MILLILITER
     Route: 041
     Dates: start: 20191018, end: 20191018
  9. LIDOCAINE/PRILOCAINE [Concomitant]
     Active Substance: LIDOCAINE\PRILOCAINE
     Indication: PAIN
     Dosage: 2.5 PERCENT
     Route: 061
     Dates: start: 20191002, end: 20191030
  10. VENETOCLAX. [Suspect]
     Active Substance: VENETOCLAX
     Dosage: 200 MILLIGRAM
     Route: 048
     Dates: start: 20190827, end: 20190827
  11. CLOTRIMAZOLE. [Concomitant]
     Active Substance: CLOTRIMAZOLE
     Indication: CANDIDA INFECTION
     Dosage: 10 MILLIGRAM
     Route: 060
     Dates: start: 20191023, end: 20191030
  12. VENETOCLAX. [Suspect]
     Active Substance: VENETOCLAX
     Dosage: 400 MILLIGRAM
     Route: 048
     Dates: start: 20190828, end: 20191030
  13. ATORVASTATIN [Concomitant]
     Active Substance: ATORVASTATIN
     Indication: DYSLIPIDAEMIA
     Dosage: 80 MILLIGRAM
     Route: 048
     Dates: start: 2010
  14. COLECALCIFEROL [Concomitant]
     Active Substance: CHOLECALCIFEROL
     Indication: SUPPLEMENTATION THERAPY
     Dosage: 2000
     Route: 048
     Dates: start: 2017
  15. SODIUM CHLORIDE. [Concomitant]
     Active Substance: SODIUM CHLORIDE
     Indication: PROPHYLAXIS
     Dosage: 1000 MILLILITER
     Route: 041
     Dates: start: 20190826, end: 20190829
  16. SODIUM CHLORIDE. [Concomitant]
     Active Substance: SODIUM CHLORIDE
     Dosage: 500 MILLILITER
     Route: 041
     Dates: start: 20190904, end: 20190904
  17. METOPROLOL. [Concomitant]
     Active Substance: METOPROLOL
     Indication: HYPERTENSION
     Dosage: 12.5 MILLIGRAM
     Route: 048
     Dates: start: 2010
  18. ACYCLOVIR. [Concomitant]
     Active Substance: ACYCLOVIR
     Indication: ANTIVIRAL PROPHYLAXIS
     Dosage: 1600 MILLIGRAM
     Route: 048
     Dates: start: 20190812
  19. VIDAZA [Suspect]
     Active Substance: AZACITIDINE
     Indication: ACUTE MYELOID LEUKAEMIA
     Dosage: 75 MILLIGRAM/SQ. METER
     Route: 041
     Dates: start: 20190826, end: 20191008
  20. VENETOCLAX. [Suspect]
     Active Substance: VENETOCLAX
     Indication: ACUTE MYELOID LEUKAEMIA
     Dosage: 100 MILLIGRAM
     Route: 048
     Dates: start: 20190826, end: 20190826
  21. ALLOPURINOL. [Concomitant]
     Active Substance: ALLOPURINOL
     Indication: PROPHYLAXIS
     Dosage: 300 MILLIGRAM
     Route: 048
     Dates: start: 20190826, end: 20191030
  22. MEGESTROL ACETATE. [Concomitant]
     Active Substance: MEGESTROL ACETATE
     Indication: DECREASED APPETITE
     Dosage: 5 MILLILITER
     Route: 048
     Dates: start: 20191010, end: 20191030

REACTIONS (1)
  - Febrile neutropenia [Recovered/Resolved]

NARRATIVE: CASE EVENT DATE: 20191030
